FAERS Safety Report 26069314 (Version 1)
Quarter: 2025Q4

REPORT INFORMATION
  Report Type: Report from Study
  Country: EU (occurrence: EU)
  Receive Date: 20251120
  Receipt Date: 20251120
  Transmission Date: 20260117
  Serious: Yes (Other)
  Sender: MYLAN
  Company Number: EU-MYLANLABS-2025M1098740

PATIENT

DRUGS (8)
  1. BUDESONIDE [Suspect]
     Active Substance: BUDESONIDE
     Indication: Eosinophilic oesophagitis
     Dosage: 2 MILLIGRAM (BUDESONIDE?ORODISPERSIBLE TABLET AS INDUCTION TREATMENT) TABLET
  2. BUDESONIDE [Suspect]
     Active Substance: BUDESONIDE
     Dosage: 2 MILLIGRAM (BUDESONIDE?ORODISPERSIBLE TABLET AS INDUCTION TREATMENT) TABLET
  3. BUDESONIDE [Suspect]
     Active Substance: BUDESONIDE
     Dosage: 2 MILLIGRAM (BUDESONIDE?ORODISPERSIBLE TABLET AS INDUCTION TREATMENT) TABLET
     Route: 048
  4. BUDESONIDE [Suspect]
     Active Substance: BUDESONIDE
     Dosage: 2 MILLIGRAM (BUDESONIDE?ORODISPERSIBLE TABLET AS INDUCTION TREATMENT) TABLET
     Route: 048
  5. BUDESONIDE [Suspect]
     Active Substance: BUDESONIDE
     Dosage: UNK, QD (BUDESONIDE?ORODISPERSIBLE TABLET AS MAINTENANCE TREATMENT), TABLET
  6. BUDESONIDE [Suspect]
     Active Substance: BUDESONIDE
     Dosage: UNK, QD (BUDESONIDE?ORODISPERSIBLE TABLET AS MAINTENANCE TREATMENT), TABLET
  7. BUDESONIDE [Suspect]
     Active Substance: BUDESONIDE
     Dosage: UNK, QD (BUDESONIDE?ORODISPERSIBLE TABLET AS MAINTENANCE TREATMENT), TABLET
     Route: 048
  8. BUDESONIDE [Suspect]
     Active Substance: BUDESONIDE
     Dosage: UNK, QD (BUDESONIDE?ORODISPERSIBLE TABLET AS MAINTENANCE TREATMENT), TABLET
     Route: 048

REACTIONS (1)
  - Drug ineffective [Unknown]
